FAERS Safety Report 5844196-3 (Version None)
Quarter: 2008Q3

REPORT INFORMATION
  Report Type: 
  Country: None (occurrence: None)
  Receive Date: 20080813
  Receipt Date: 20080801
  Transmission Date: 20090109
  Serious: Yes (Other)
  Sender: FDA-Public Use
  Company Number: AU-PFIZER INC-2008065180

PATIENT
  Age: 80 Year
  Sex: Female

DRUGS (1)
  1. XALATAN [Suspect]
     Route: 047

REACTIONS (1)
  - ILLUSION [None]
